FAERS Safety Report 7647039-0 (Version None)
Quarter: 2011Q3

REPORT INFORMATION
  Report Type: 
  Country: None (occurrence: None)
  Receive Date: 20110801
  Receipt Date: 20110717
  Transmission Date: 20111222
  Serious: No
  Sender: FDA-Public Use
  Company Number: US-B.I. PHARMACEUTICALS,INC./RIDGEFIELD-2011-BP-18000BP

PATIENT
  Sex: Female

DRUGS (2)
  1. ZANTAC CM [Concomitant]
  2. ZANTAC [Suspect]

REACTIONS (2)
  - FEELING HOT [None]
  - HEADACHE [None]
